FAERS Safety Report 9316443 (Version 1)
Quarter: 2013Q2

REPORT INFORMATION
  Report Type: Spontaneous
  Country: US (occurrence: US)
  Receive Date: 20130530
  Receipt Date: 20130530
  Transmission Date: 20140414
  Serious: Yes (Death)
  Sender: FDA-Public Use
  Company Number: US-AMGEN-USASP2013037921

PATIENT
  Age: 80 Year
  Sex: Female

DRUGS (3)
  1. PEGFILGRASTIM [Suspect]
     Indication: CERVICAL DYSPLASIA
     Dosage: 60 MG PER CHEMO REGIM
     Route: 065
  2. PEGFILGRASTIM [Suspect]
     Indication: NEUTROPENIA
  3. ANTINEOPLASTIC AGENTS [Concomitant]
     Dosage: UNK

REACTIONS (1)
  - Death [Fatal]
